FAERS Safety Report 14529277 (Version 1)
Quarter: 2018Q1

REPORT INFORMATION
  Report Type: Spontaneous
  Country: RU (occurrence: RU)
  Receive Date: 20180214
  Receipt Date: 20180214
  Transmission Date: 20180509
  Serious: Yes (Other)
  Sender: FDA-Public Use
  Company Number: RU-ASTRAZENECA-2018SE18259

PATIENT
  Age: 53 Year
  Sex: Male
  Weight: 83 kg

DRUGS (9)
  1. OMEGA 3 [Concomitant]
     Active Substance: OMEGA-3 FATTY ACIDS
     Dates: start: 201701
  2. TRIMETAZIDINE [Concomitant]
     Active Substance: TRIMETAZIDINE
     Dates: start: 201701
  3. LOSAP [Concomitant]
     Dates: start: 201701
  4. BRILINTA [Suspect]
     Active Substance: TICAGRELOR
     Indication: MYOCARDIAL INFARCTION
     Route: 048
     Dates: start: 201701
  5. ROSUVASTATIN. [Concomitant]
     Active Substance: ROSUVASTATIN
     Dates: start: 201701
  6. THROMBO ASS [Concomitant]
     Active Substance: ASPIRIN
     Dates: start: 201701
  7. EFOX LONG [Concomitant]
     Dates: start: 201701
  8. CONCOR COR [Concomitant]
     Active Substance: BISOPROLOL FUMARATE
     Dates: start: 201701
  9. MEXIDOL [Concomitant]
     Dates: start: 201701

REACTIONS (4)
  - Vascular stent thrombosis [Recovered/Resolved]
  - Electrocardiogram ambulatory abnormal [Unknown]
  - Cardiac valve disease [Not Recovered/Not Resolved]
  - Dizziness [Not Recovered/Not Resolved]

NARRATIVE: CASE EVENT DATE: 201708
